FAERS Safety Report 9770373 (Version 2)
Quarter: 2014Q1

REPORT INFORMATION
  Report Type: Spontaneous
  Country: US (occurrence: US)
  Receive Date: 20131218
  Receipt Date: 20140117
  Transmission Date: 20141002
  Serious: No
  Sender: FDA-Public Use
  Company Number: US-BAYER-2013-154353

PATIENT
  Sex: Male
  Weight: 79 kg

DRUGS (3)
  1. BAYER GENUINE ASPIRIN ORIGINAL STRENGTH [Suspect]
     Indication: PAIN
     Route: 048
  2. ALEVE CAPLET [Suspect]
     Indication: PAIN
     Dosage: 100 DF, UNK A WEEK
  3. ALEVE CAPLET [Suspect]
     Indication: PAIN
     Dosage: 4 DF, Q4HR

REACTIONS (4)
  - Drug ineffective [None]
  - Incorrect dose administered [None]
  - Incorrect drug administration duration [None]
  - Abdominal discomfort [None]
